FAERS Safety Report 8504265-6 (Version None)
Quarter: 2012Q3

REPORT INFORMATION
  Report Type: 
  Country: None (occurrence: None)
  Receive Date: 20120711
  Receipt Date: 20110624
  Transmission Date: 20120928
  Serious: Yes (Hospitalization)
  Sender: FDA-Public Use
  Company Number: CN-FRI-1000036971

PATIENT
  Sex: Female
  Weight: 65 kg

DRUGS (3)
  1. BACLOFEN [Concomitant]
     Route: 048
  2. CITALOPRAM HYDROBROMIDE [Suspect]
     Indication: DEPRESSION
     Dosage: 10 MG
     Route: 048
     Dates: start: 20110604, end: 20110605
  3. VALPROATE SODIUM [Concomitant]
     Route: 048

REACTIONS (3)
  - MENTAL DISORDER [None]
  - FATIGUE [None]
  - SOMNOLENCE [None]
